FAERS Safety Report 9348526 (Version 2)
Quarter: 2014Q2

REPORT INFORMATION
  Report Type: Report from Study
  Country: US (occurrence: US)
  Receive Date: 20130614
  Receipt Date: 20140527
  Transmission Date: 20141212
  Serious: Yes (Other)
  Sender: FDA-Public Use
  Company Number: US-BAYER-2013-072320

PATIENT
  Age: 10 Year
  Sex: Female

DRUGS (5)
  1. SORAFENIB (RAF KINASE INHIBITOR) [Suspect]
     Indication: ASTROCYTOMA, LOW GRADE
     Dosage: 87 MG/M2, UNK
  2. SORAFENIB (RAF KINASE INHIBITOR) [Suspect]
     Indication: ASTROCYTOMA, LOW GRADE
     Dosage: 130 MG/M2, UNK
  3. SORAFENIB (RAF KINASE INHIBITOR) [Suspect]
     Indication: ASTROCYTOMA, LOW GRADE
     Dosage: 250 MG, BID
  4. SORAFENIB (RAF KINASE INHIBITOR) [Suspect]
     Indication: ASTROCYTOMA, LOW GRADE
     Dosage: 174 MG/M2, UNK
  5. SORAFENIB (RAF KINASE INHIBITOR) [Suspect]
     Indication: ASTROCYTOMA, LOW GRADE
     Dosage: 217 MG/M2, UNK
     Dates: end: 20111201

REACTIONS (14)
  - Neoplasm progression [None]
  - Rash [Recovered/Resolved]
  - Flushing [Recovered/Resolved]
  - Dry skin [Recovered/Resolved]
  - Erythema [Recovered/Resolved]
  - Cough [Recovered/Resolved]
  - Upper-airway cough syndrome [Recovered/Resolved]
  - Dysphonia [Recovered/Resolved]
  - Vomiting [Recovered/Resolved]
  - Constipation [Recovered/Resolved]
  - Alopecia [Recovered/Resolved]
  - Oropharyngeal pain [Recovered/Resolved]
  - Alopecia [Recovered/Resolved]
  - Hyperglycaemia [Recovered/Resolved]
